FAERS Safety Report 6694023-X (Version None)
Quarter: 2010Q2

REPORT INFORMATION
  Report Type: 
  Country: None (occurrence: None)
  Receive Date: 20100423
  Receipt Date: 20100414
  Transmission Date: 20101027
  Serious: Yes (Death)
  Sender: FDA-Public Use
  Company Number: AU-SANOFI-AVENTIS-2010SA021618

PATIENT
  Age: 64 Year
  Sex: Female

DRUGS (5)
  1. LASIX [Suspect]
     Indication: HYPERTENSION
     Route: 065
     Dates: end: 20100226
  2. PERINDOPRIL [Suspect]
     Indication: HYPERTENSION
     Route: 065
     Dates: start: 20091223, end: 20100226
  3. CLOPINE [Suspect]
     Route: 065
     Dates: start: 20050922, end: 20100226
  4. EPILIM [Concomitant]
     Indication: BIPOLAR DISORDER
  5. FERROUS FUMARATE/FOLIC ACID [Concomitant]
     Indication: IRON DEFICIENCY

REACTIONS (1)
  - DEATH [None]
